FAERS Safety Report 9944063 (Version 2)
Quarter: 2014Q1

REPORT INFORMATION
  Report Type: Spontaneous
  Country: US (occurrence: US)
  Receive Date: 20140303
  Receipt Date: 20140303
  Transmission Date: 20141002
  Serious: Yes (Disabling)
  Sender: FDA-Public Use
  Company Number: US-GE HEALTHCARE MEDICAL DIAGNOSTICS-OSCN-PR-0805S-0314

PATIENT
  Sex: Male

DRUGS (7)
  1. OMNISCAN [Suspect]
     Indication: PRODUCT USED FOR UNKNOWN INDICATION
     Route: 042
     Dates: start: 20060611, end: 20060611
  2. MAGNEVIST [Suspect]
     Indication: TRANSPLANT FAILURE
     Route: 042
     Dates: start: 20040226, end: 20040226
  3. OPTIMARK [Suspect]
     Indication: PRODUCT USED FOR UNKNOWN INDICATION
     Route: 042
     Dates: start: 20040226, end: 20040226
  4. MULTIHANCE [Suspect]
     Indication: PRODUCT USED FOR UNKNOWN INDICATION
     Route: 042
     Dates: start: 20060611, end: 20060611
  5. PROHANCE [Suspect]
     Indication: PRODUCT USED FOR UNKNOWN INDICATION
     Route: 042
     Dates: start: 20060611, end: 20060611
  6. EPOGEN [Concomitant]
     Dates: start: 1993, end: 2004
  7. LOPRESSOR [Concomitant]
     Dates: start: 200401, end: 200505

REACTIONS (1)
  - Nephrogenic systemic fibrosis [Not Recovered/Not Resolved]
